FAERS Safety Report 4715989-0 (Version None)
Quarter: 2005Q3

REPORT INFORMATION
  Report Type: 
  Country: None (occurrence: None)
  Receive Date: 20050718
  Receipt Date: 20050714
  Transmission Date: 20060218
  Serious: Yes (Hospitalization)
  Sender: FDA-Public Use
  Company Number: 177

PATIENT
  Age: 54 Year
  Sex: Male
  Weight: 131 kg

DRUGS (10)
  1. MELPHALAN [Suspect]
     Indication: MULTIPLE MYELOMA
     Route: 042
     Dates: start: 20050403
  2. THALIDOMIDE [Suspect]
     Indication: MULTIPLE MYELOMA
     Dosage: 100MG PER DAY
     Route: 048
     Dates: start: 20050425, end: 20050505
  3. DEXAMETHASONE [Suspect]
     Indication: MULTIPLE MYELOMA
     Dosage: 20MG PER DAY
     Route: 048
     Dates: start: 20050425, end: 20050428
  4. DIGOXIN [Concomitant]
  5. MULTI-VITAMINS [Concomitant]
  6. CALCIUM GLUCONATE [Concomitant]
  7. MAGNESIUM [Concomitant]
  8. FOLIC ACID [Concomitant]
  9. ACYCLOVIR [Concomitant]
  10. DOXYCYCLINE [Concomitant]

REACTIONS (5)
  - ASTHENIA [None]
  - CHILLS [None]
  - COUGH [None]
  - PHARYNGOLARYNGEAL PAIN [None]
  - PNEUMONIA [None]
